FAERS Safety Report 22201982 (Version 7)
Quarter: 2023Q4

REPORT INFORMATION
  Report Type: Spontaneous
  Country: US (occurrence: US)
  Receive Date: 20230412
  Receipt Date: 20231114
  Transmission Date: 20240109
  Serious: No
  Sender: FDA-Public Use
  Company Number: US-PFIZER INC-PV202300060199

PATIENT
  Age: 4 Year
  Sex: Male

DRUGS (2)
  1. GENOTROPIN [Suspect]
     Active Substance: SOMATROPIN
     Dosage: 0.4 MG (0.4 MG ALTERNATING WITH 0.6 MG)
     Dates: start: 20230324
  2. GENOTROPIN [Suspect]
     Active Substance: SOMATROPIN
     Dosage: 0.6 MG (0.4 MG ALTERNATING WITH 0.6 MG)
     Dates: start: 20230324

REACTIONS (5)
  - Wrong technique in device usage process [Unknown]
  - Poor quality device used [Unknown]
  - Device use issue [Unknown]
  - Drug dose omission by device [Unknown]
  - Device breakage [Unknown]
